FAERS Safety Report 4346170-5 (Version None)
Quarter: 2004Q1

REPORT INFORMATION
  Report Type: 
  Country: None (occurrence: None)
  Receive Date: 20040325
  Receipt Date: 20040108
  Transmission Date: 20041129
  Serious: No
  Sender: FDA-Public Use
  Company Number: USA040156094

PATIENT
  Age: 59 Year
  Sex: Female

DRUGS (1)
  1. FORTEO [Suspect]
     Dosage: 20 UG/DAY
     Dates: start: 20031227, end: 20040103

REACTIONS (6)
  - ARTHRALGIA [None]
  - EXCITABILITY [None]
  - FATIGUE [None]
  - MUSCLE CRAMP [None]
  - MUSCULAR WEAKNESS [None]
  - PAIN [None]
